FAERS Safety Report 12492771 (Version 1)
Quarter: 2016Q2

REPORT INFORMATION
  Report Type: Spontaneous
  Country: US (occurrence: US)
  Receive Date: 20160623
  Receipt Date: 20160623
  Transmission Date: 20160815
  Serious: Yes (Hospitalization)
  Sender: FDA-Public Use
  Company Number: US-ASTRAZENECA-2016SE66787

PATIENT
  Age: 50 Year
  Sex: Male

DRUGS (2)
  1. PRE-MIXED INSULIN [Concomitant]
     Dosage: UNKNOWN
     Route: 065
  2. BYDUREON [Suspect]
     Active Substance: EXENATIDE
     Indication: TYPE 2 DIABETES MELLITUS
     Dosage: 2.0MG UNKNOWN
     Route: 058
     Dates: end: 201605

REACTIONS (3)
  - Weight decreased [Unknown]
  - Off label use [Unknown]
  - Pancreatitis [Unknown]

NARRATIVE: CASE EVENT DATE: 201605
